FAERS Safety Report 4783090-6 (Version None)
Quarter: 2005Q3

REPORT INFORMATION
  Report Type: 
  Country: None (occurrence: None)
  Receive Date: 20050914
  Receipt Date: 20050628
  Transmission Date: 20060218
  Serious: Yes (Other)
  Sender: FDA-Public Use
  Company Number: 163-20785-05060406

PATIENT
  Age: 74 Year
  Sex: Male

DRUGS (6)
  1. THALOMID [Suspect]
     Indication: METASTASES TO HEART
     Dosage: SEE IMAGE
     Route: 048
     Dates: start: 20040414, end: 20040101
  2. THALOMID [Suspect]
     Indication: METASTASES TO PLEURA
     Dosage: SEE IMAGE
     Route: 048
     Dates: start: 20040414, end: 20040101
  3. THALOMID [Suspect]
     Indication: METASTATIC MALIGNANT MELANOMA
     Dosage: SEE IMAGE
     Route: 048
     Dates: start: 20040414, end: 20040101
  4. THALOMID [Suspect]
     Indication: METASTASES TO HEART
     Dosage: SEE IMAGE
     Route: 048
     Dates: start: 20050119, end: 20050214
  5. THALOMID [Suspect]
     Indication: METASTASES TO PLEURA
     Dosage: SEE IMAGE
     Route: 048
     Dates: start: 20050119, end: 20050214
  6. THALOMID [Suspect]
     Indication: METASTATIC MALIGNANT MELANOMA
     Dosage: SEE IMAGE
     Route: 048
     Dates: start: 20050119, end: 20050214

REACTIONS (2)
  - PARAESTHESIA [None]
  - PARTIAL SEIZURES [None]
